FAERS Safety Report 8769627 (Version 1)
Quarter: 2012Q4

REPORT INFORMATION
  Report Type: 
  Country: US (occurrence: US)
  Receive Date: 20120905
  Receipt Date: 20120905
  Transmission Date: 20130627
  Serious: No
  Sender: FDA-Public Use
  Company Number: US-MYLANLABS-2012S1008191

PATIENT
  Sex: Female

DRUGS (1)
  1. BUTORPHANOL TARTRATE NASAL SPRAY, USP [Suspect]
     Indication: MIGRAINE
     Dosage: 1 spray in each nostril PRN migraines
     Route: 045
     Dates: start: 201011, end: 201102

REACTIONS (2)
  - Ageusia [Not Recovered/Not Resolved]
  - Anosmia [Not Recovered/Not Resolved]
